FAERS Safety Report 4382658-9 (Version None)
Quarter: 2004Q2

REPORT INFORMATION
  Report Type: 
  Country: None (occurrence: None)
  Receive Date: 20040622
  Receipt Date: 20040614
  Transmission Date: 20050107
  Serious: Yes (Hospitalization)
  Sender: FDA-Public Use
  Company Number: FR-GLAXOSMITHKLINE-B0335586A

PATIENT
  Age: 57 Year
  Sex: Male

DRUGS (7)
  1. MALARONE [Suspect]
     Dosage: 4UNIT PER DAY
     Route: 048
     Dates: start: 20040514, end: 20040517
  2. ACETAMINOPHEN [Suspect]
     Dosage: 5G PER DAY
     Route: 048
     Dates: start: 20040512, end: 20040517
  3. SECTRAL [Concomitant]
  4. TEGRETOL [Concomitant]
  5. TAHOR [Concomitant]
  6. TICLID [Concomitant]
     Route: 048
  7. NITROGLYCERIN [Concomitant]

REACTIONS (8)
  - BILIRUBIN CONJUGATED INCREASED [None]
  - BLOOD ALKALINE PHOSPHATASE INCREASED [None]
  - BLOOD BILIRUBIN INCREASED [None]
  - GAMMA-GLUTAMYLTRANSFERASE INCREASED [None]
  - HEPATITIS [None]
  - HYPERSENSITIVITY [None]
  - PYREXIA [None]
  - TRANSAMINASES INCREASED [None]
